FAERS Safety Report 5715929-1 (Version None)
Quarter: 2008Q2

REPORT INFORMATION
  Report Type: 
  Country: None (occurrence: None)
  Receive Date: 20080424
  Receipt Date: 20080414
  Transmission Date: 20081010
  Serious: Yes (Hospitalization, Other)
  Sender: FDA-Public Use
  Company Number: UY-BAYER-200813173LA

PATIENT
  Age: 31 Year
  Sex: Male

DRUGS (1)
  1. ASPIRIN [Suspect]
     Indication: ARTHRALGIA
     Dosage: UNIT DOSE: 500 MG
     Route: 048
     Dates: start: 20080403, end: 20080403

REACTIONS (8)
  - ASTHENIA [None]
  - DIZZINESS [None]
  - GASTROINTESTINAL HAEMORRHAGE [None]
  - HAEMATEMESIS [None]
  - HAEMORRHAGIC ANAEMIA [None]
  - HYPOTENSION [None]
  - MELAENA [None]
  - TACHYCARDIA [None]
